FAERS Safety Report 9003830 (Version 1)
Quarter: 2013Q1

REPORT INFORMATION
  Report Type: Spontaneous
  Country: US (occurrence: US)
  Receive Date: 20130108
  Receipt Date: 20130108
  Transmission Date: 20140127
  Serious: No
  Sender: FDA-Public Use
  Company Number: US-GLAXOSMITHKLINE-A0988835A

PATIENT
  Age: 78 Year
  Sex: Male
  Weight: 55.5 kg

DRUGS (1)
  1. LOVAZA [Suspect]
     Indication: BLOOD TRIGLYCERIDES INCREASED
     Dosage: 1G PER DAY
     Route: 048

REACTIONS (1)
  - Dysgeusia [Not Recovered/Not Resolved]
